FAERS Safety Report 11790609 (Version 1)
Quarter: 2015Q4

REPORT INFORMATION
  Report Type: Spontaneous
  Country: US (occurrence: US)
  Receive Date: 20151201
  Receipt Date: 20151201
  Transmission Date: 20160305
  Serious: No
  Sender: FDA-Public Use
  Company Number: US-PFIZER INC-2015406330

PATIENT
  Age: 54 Year
  Sex: Female
  Weight: 50 kg

DRUGS (1)
  1. NICOTROL [Suspect]
     Active Substance: NICOTINE
     Indication: SMOKING CESSATION THERAPY
     Dosage: 2 DF, DAILY
     Dates: start: 20151116, end: 201511

REACTIONS (5)
  - Irritability [Unknown]
  - Product quality issue [Unknown]
  - Crying [Unknown]
  - Emotional disorder [Unknown]
  - Agitation [Unknown]
